FAERS Safety Report 12988671 (Version 2)
Quarter: 2017Q1

REPORT INFORMATION
  Report Type: Report from Study
  Country: US (occurrence: US)
  Receive Date: 20161130
  Receipt Date: 20170110
  Transmission Date: 20170428
  Serious: Yes (Hospitalization, Disabling, Other)
  Sender: FDA-Public Use
  Company Number: US-ASTRAZENECA-2016SE42144

PATIENT
  Age: 17803 Day
  Sex: Female

DRUGS (4)
  1. LYNPARZA [Suspect]
     Active Substance: OLAPARIB
     Indication: OVARIAN CANCER
     Route: 048
     Dates: start: 20150928
  2. ANTI NAUSEA MEDICATION [Concomitant]
     Indication: NAUSEA
  3. PAIN MEDICATION [Concomitant]
     Active Substance: UNSPECIFIED INGREDIENT
     Indication: HEADACHE
  4. LISINOPRIL. [Concomitant]
     Active Substance: LISINOPRIL
     Dosage: 20.0MG UNKNOWN
     Route: 048

REACTIONS (9)
  - Hypophagia [Unknown]
  - Nausea [Recovering/Resolving]
  - Pancytopenia [Unknown]
  - Dehydration [Recovered/Resolved]
  - Blood count abnormal [Not Recovered/Not Resolved]
  - Pain [Unknown]
  - Immunodeficiency [Unknown]
  - Vomiting [Recovering/Resolving]
  - Malignant neoplasm progression [Unknown]

NARRATIVE: CASE EVENT DATE: 20161009
